FAERS Safety Report 23294966 (Version 1)
Quarter: 2023Q4

REPORT INFORMATION
  Report Type: Other
  Country: IN (occurrence: None)
  Receive Date: 20231213
  Receipt Date: 20231213
  Transmission Date: 20240110
  Serious: Yes (Hospitalization)
  Sender: FDA-Public Use
  Company Number: IN-Square-000192

PATIENT
  Age: 7 Week
  Sex: Male
  Weight: 2.81 kg

DRUGS (3)
  1. CALCIUM ACETATE [Suspect]
     Active Substance: CALCIUM ACETATE
     Indication: Hyperkalaemia
     Dosage: 10% CALCIUM GLUCONATE (200 MG/KG/DAY)
     Route: 042
  2. SODIUM BICARBONATE [Suspect]
     Active Substance: SODIUM BICARBONATE
     Indication: Hyperkalaemia
  3. CALCIUM ACETATE [Suspect]
     Active Substance: CALCIUM ACETATE
     Indication: Hyperkalaemia
     Route: 042

REACTIONS (1)
  - Cutaneous calcification [Recovered/Resolved]
